FAERS Safety Report 6968458-1 (Version None)
Quarter: 2010Q3

REPORT INFORMATION
  Report Type: 
  Country: None (occurrence: None)
  Receive Date: 20100907
  Receipt Date: 20100825
  Transmission Date: 20110219
  Serious: Yes (Other)
  Sender: FDA-Public Use
  Company Number: PHFR2010GB02567

PATIENT
  Sex: Male

DRUGS (1)
  1. CLOZARIL [Suspect]
     Indication: SCHIZOPHRENIA
     Dosage: UNK
     Route: 048
     Dates: start: 19981006

REACTIONS (3)
  - ALANINE AMINOTRANSFERASE INCREASED [None]
  - ALCOHOL ABUSE [None]
  - GAMMA-GLUTAMYLTRANSFERASE INCREASED [None]
